FAERS Safety Report 19711577 (Version 1)
Quarter: 2021Q3

REPORT INFORMATION
  Report Type: Spontaneous
  Country: US (occurrence: US)
  Receive Date: 20210817
  Receipt Date: 20210817
  Transmission Date: 20211014
  Serious: No
  Sender: FDA-Public Use
  Company Number: US-SOMERSET-2021-US-000324

PATIENT
  Age: 46 Year
  Sex: Female

DRUGS (1)
  1. PILOCARPINE HYDROCHLORIDE OPHTHALMIC SOLUTION USP, 1% [Suspect]
     Active Substance: PILOCARPINE HYDROCHLORIDE
     Dates: start: 20210615, end: 20210625

REACTIONS (5)
  - Eye swelling [Recovered/Resolved]
  - Ocular hyperaemia [Recovering/Resolving]
  - Eye pain [Recovering/Resolving]
  - Eye pruritus [Recovering/Resolving]
  - Swelling face [Recovered/Resolved]

NARRATIVE: CASE EVENT DATE: 20210616
